FAERS Safety Report 6499061-8 (Version None)
Quarter: 2009Q4

REPORT INFORMATION
  Report Type: 
  Country: None (occurrence: None)
  Receive Date: 20091215
  Receipt Date: 20091201
  Transmission Date: 20100525
  Serious: Yes (Other)
  Sender: FDA-Public Use
  Company Number: DE-MYLANLABS-2009S1020716

PATIENT
  Age: 30 Year
  Sex: Female

DRUGS (2)
  1. AMITRIPTYLINE [Suspect]
     Indication: SLEEP DISORDER
     Route: 048
     Dates: start: 20080101, end: 20090101
  2. AMITRIPTYLINE [Suspect]
     Route: 048
     Dates: start: 20090101

REACTIONS (2)
  - ABORTION SPONTANEOUS [None]
  - DRUG EXPOSURE DURING PREGNANCY [None]
